FAERS Safety Report 13786514 (Version 1)
Quarter: 2017Q3

REPORT INFORMATION
  Report Type: Spontaneous
  Country: US (occurrence: US)
  Receive Date: 20170725
  Receipt Date: 20170725
  Transmission Date: 20171127
  Serious: No
  Sender: FDA-Public Use
  Company Number: None

PATIENT

DRUGS (6)
  1. OCTREOTIDE ACETATE OCTREOTIDE ACETATE 0.1MG/ML [Suspect]
     Active Substance: OCTREOTIDE ACETATE
     Route: 058
  2. OCTREOTIDE ACETATE  OCTREOTIDE ACETATE 0.05MG/ML [Suspect]
     Active Substance: OCTREOTIDE ACETATE
     Route: 058
  3. OCTREOTIDE ACETATE CCTREOTIDE ACETATE [Suspect]
     Active Substance: OCTREOTIDE ACETATE
     Route: 058
  4. OCTREOTIDE ACETATE OCTREOTIDE ACETATE [Suspect]
     Active Substance: OCTREOTIDE ACETATE
     Route: 058
  5. OCTREOTIDE ACETATE  OCTREOTIDE ACETATE [Suspect]
     Active Substance: OCTREOTIDE ACETATE
     Route: 058
  6. OCTREOTIDE ACETATE OCTREOTIDE ACETATE 0.05MG/ML [Suspect]
     Active Substance: OCTREOTIDE ACETATE
     Route: 058

REACTIONS (2)
  - Intercepted product selection error [None]
  - Product label confusion [None]
